FAERS Safety Report 8023056-6 (Version None)
Quarter: 2012Q1

REPORT INFORMATION
  Report Type: 
  Country: None (occurrence: None)
  Receive Date: 20120104
  Receipt Date: 20111229
  Transmission Date: 20120608
  Serious: Yes (Hospitalization, Other)
  Sender: FDA-Public Use
  Company Number: US-PFIZER INC-2011316513

PATIENT
  Sex: Male
  Weight: 120.18 kg

DRUGS (3)
  1. INSULIN [Concomitant]
     Dosage: UNK
  2. REVATIO [Suspect]
     Indication: PULMONARY OEDEMA
     Dosage: UNK, 3X/DAY
     Route: 048
     Dates: start: 20110101, end: 20111001
  3. HYDRALAZINE [Concomitant]
     Indication: HYPERTENSION
     Dosage: 75 MG, UNK

REACTIONS (4)
  - VISUAL IMPAIRMENT [None]
  - MIGRAINE [None]
  - RENAL DISORDER [None]
  - TOE AMPUTATION [None]
